FAERS Safety Report 24156976 (Version 2)
Quarter: 2024Q3

REPORT INFORMATION
  Report Type: Spontaneous
  Country: US (occurrence: US)
  Receive Date: 20240731
  Receipt Date: 20240918
  Transmission Date: 20241017
  Serious: No
  Sender: PFIZER
  Company Number: US-PFIZER INC-202400223156

PATIENT
  Age: 3 Year
  Sex: Female
  Weight: 16.6 kg

DRUGS (1)
  1. GENOTROPIN [Suspect]
     Active Substance: SOMATROPIN
     Indication: Growth hormone deficiency
     Dosage: 0.5 MG, DAILY
     Dates: start: 20240513, end: 20240722

REACTIONS (3)
  - Drug dose omission by device [Unknown]
  - Device breakage [Unknown]
  - Device use error [Unknown]

NARRATIVE: CASE EVENT DATE: 20240723
